FAERS Safety Report 9506128 (Version 1)
Quarter: 2013Q1

REPORT INFORMATION
  Report Type: Spontaneous
  Country: US (occurrence: None)
  Receive Date: 20130301
  Receipt Date: 20130301
  Transmission Date: 20140127
  Serious: Yes (Other)
  Sender: FDA-Public Use
  Company Number: PHEH2012US008632

PATIENT
  Sex: Female

DRUGS (1)
  1. TEGRETOL (CARBAMAZEPINE) UNKNOWN [Suspect]
     Indication: FACIAL SPASM

REACTIONS (11)
  - Stevens-Johnson syndrome [None]
  - Mouth ulceration [None]
  - Eye swelling [None]
  - Oedema mouth [None]
  - Eye irritation [None]
  - Eye pain [None]
  - Dry skin [None]
  - Blister [None]
  - Depression [None]
  - Anxiety [None]
  - Anhedonia [None]
